FAERS Safety Report 8583905-X (Version None)
Quarter: 2012Q3

REPORT INFORMATION
  Report Type: 
  Country: None (occurrence: None)
  Receive Date: 20120810
  Receipt Date: 20120803
  Transmission Date: 20120928
  Serious: Yes (Hospitalization, Disabling)
  Sender: FDA-Public Use
  Company Number: DE-009507513-1208DEU002924

PATIENT

DRUGS (7)
  1. IBUPROFEN [Concomitant]
  2. AMLODIPINE [Concomitant]
  3. RAMIPRIL [Concomitant]
  4. COSOPT [Concomitant]
     Route: 047
  5. CLOPIDOGREL [Concomitant]
  6. JANUVIA [Suspect]
     Indication: DIABETES MELLITUS
     Dosage: UNK
     Route: 048
     Dates: start: 20110101
  7. METFORMIN HYDROCHLORIDE [Concomitant]

REACTIONS (2)
  - AGEUSIA [None]
  - CEREBROVASCULAR ACCIDENT [None]
